FAERS Safety Report 11141626 (Version 1)
Quarter: 2015Q2

REPORT INFORMATION
  Report Type: Spontaneous
  Country: US (occurrence: None)
  Receive Date: 20150526
  Receipt Date: 20150526
  Transmission Date: 20150821
  Serious: Yes (Disabling)
  Sender: FDA-Public Use
  Company Number: None

PATIENT
  Age: 21 Year
  Sex: Male
  Weight: 63.5 kg

DRUGS (1)
  1. CIPROFLOXACIN. [Suspect]
     Active Substance: CIPROFLOXACIN
     Indication: URINARY TRACT INFECTION
     Dosage: 10 PILLS
     Route: 048
     Dates: start: 20150429, end: 20150501

REACTIONS (11)
  - Asthenia [None]
  - Dizziness exertional [None]
  - Myalgia [None]
  - Depression [None]
  - Arthralgia [None]
  - Headache [None]
  - Anxiety [None]
  - Fatigue [None]
  - Disturbance in attention [None]
  - Memory impairment [None]
  - Depersonalisation [None]

NARRATIVE: CASE EVENT DATE: 20150501
